FAERS Safety Report 17599039 (Version 58)
Quarter: 2025Q1

REPORT INFORMATION
  Report Type: Spontaneous
  Country: IL (occurrence: IL)
  Receive Date: 20200330
  Receipt Date: 20250310
  Transmission Date: 20250408
  Serious: Yes (Other)
  Sender: PFIZER
  Company Number: IL-PFIZER INC-2019104227

PATIENT
  Age: 49 Year
  Sex: Female

DRUGS (26)
  1. ELELYSO [Suspect]
     Active Substance: TALIGLUCERASE ALFA
     Indication: Gaucher^s disease
     Route: 042
     Dates: start: 20160301
  2. ELELYSO [Suspect]
     Active Substance: TALIGLUCERASE ALFA
     Route: 042
  3. ELELYSO [Suspect]
     Active Substance: TALIGLUCERASE ALFA
     Route: 042
  4. ELELYSO [Suspect]
     Active Substance: TALIGLUCERASE ALFA
     Route: 042
  5. ELELYSO [Suspect]
     Active Substance: TALIGLUCERASE ALFA
     Route: 042
  6. ELELYSO [Suspect]
     Active Substance: TALIGLUCERASE ALFA
     Route: 042
  7. ELELYSO [Suspect]
     Active Substance: TALIGLUCERASE ALFA
     Route: 042
     Dates: start: 20220327
  8. ELELYSO [Suspect]
     Active Substance: TALIGLUCERASE ALFA
     Route: 042
     Dates: start: 20220928, end: 20220928
  9. ELELYSO [Suspect]
     Active Substance: TALIGLUCERASE ALFA
     Route: 042
  10. ELELYSO [Suspect]
     Active Substance: TALIGLUCERASE ALFA
     Route: 042
  11. ELELYSO [Suspect]
     Active Substance: TALIGLUCERASE ALFA
     Route: 042
     Dates: start: 20230101
  12. ELELYSO [Suspect]
     Active Substance: TALIGLUCERASE ALFA
     Route: 042
  13. ELELYSO [Suspect]
     Active Substance: TALIGLUCERASE ALFA
     Route: 042
     Dates: start: 20230521, end: 20230521
  14. ELELYSO [Suspect]
     Active Substance: TALIGLUCERASE ALFA
     Route: 042
     Dates: start: 20230521, end: 20230521
  15. ELELYSO [Suspect]
     Active Substance: TALIGLUCERASE ALFA
  16. ELELYSO [Suspect]
     Active Substance: TALIGLUCERASE ALFA
     Route: 042
  17. ELELYSO [Suspect]
     Active Substance: TALIGLUCERASE ALFA
     Route: 042
  18. ELELYSO [Suspect]
     Active Substance: TALIGLUCERASE ALFA
     Route: 042
     Dates: start: 20240107, end: 20240219
  19. ELELYSO [Suspect]
     Active Substance: TALIGLUCERASE ALFA
     Route: 042
     Dates: start: 20240416
  20. ELELYSO [Suspect]
     Active Substance: TALIGLUCERASE ALFA
     Route: 042
     Dates: start: 20240512
  21. ELELYSO [Suspect]
     Active Substance: TALIGLUCERASE ALFA
     Route: 042
     Dates: start: 20240721
  22. ELELYSO [Suspect]
     Active Substance: TALIGLUCERASE ALFA
     Route: 042
     Dates: start: 20240929, end: 20240929
  23. ELELYSO [Suspect]
     Active Substance: TALIGLUCERASE ALFA
     Route: 042
     Dates: start: 20241013
  24. ELELYSO [Suspect]
     Active Substance: TALIGLUCERASE ALFA
     Route: 042
     Dates: start: 20241126, end: 20241126
  25. ELELYSO [Suspect]
     Active Substance: TALIGLUCERASE ALFA
     Route: 042
     Dates: start: 20241215, end: 20241215
  26. ELELYSO [Suspect]
     Active Substance: TALIGLUCERASE ALFA
     Route: 042
     Dates: start: 20250225

REACTIONS (16)
  - Fall [Unknown]
  - Hand fracture [Unknown]
  - Ankle fracture [Recovered/Resolved]
  - Injury associated with device [Unknown]
  - Localised infection [Unknown]
  - Asthenia [Recovering/Resolving]
  - Nasopharyngitis [Unknown]
  - COVID-19 [Recovered/Resolved]
  - Intentional dose omission [Unknown]
  - Intentional product misuse [Unknown]
  - Inappropriate schedule of product administration [Unknown]
  - Product dose omission issue [Unknown]
  - Off label use [Unknown]
  - Product storage error [Unknown]
  - Product dose omission issue [Unknown]
  - Drug monitoring procedure not performed [Unknown]

NARRATIVE: CASE EVENT DATE: 20190801
